FAERS Safety Report 13143844 (Version 1)
Quarter: 2017Q1

REPORT INFORMATION
  Report Type: Spontaneous
  Country: FR (occurrence: FR)
  Receive Date: 20170124
  Receipt Date: 20170124
  Transmission Date: 20170428
  Serious: Yes (Hospitalization)
  Sender: FDA-Public Use
  Company Number: FR-JNJFOC-20170115587

PATIENT
  Age: 74 Year
  Sex: Male
  Weight: 53 kg

DRUGS (4)
  1. IMBRUVICA [Suspect]
     Active Substance: IBRUTINIB
     Indication: CHRONIC LYMPHOCYTIC LEUKAEMIA
     Route: 048
     Dates: start: 20160628, end: 20161104
  2. ZELITREX [Concomitant]
     Active Substance: VALACYCLOVIR HYDROCHLORIDE
     Route: 065
  3. IMBRUVICA [Suspect]
     Active Substance: IBRUTINIB
     Indication: CHRONIC LYMPHOCYTIC LEUKAEMIA
     Route: 048
     Dates: start: 20160526
  4. WELLVONE [Concomitant]
     Active Substance: ATOVAQUONE
     Route: 065

REACTIONS (2)
  - Subdural haematoma [Recovering/Resolving]
  - Platelet dysfunction [Recovering/Resolving]

NARRATIVE: CASE EVENT DATE: 20161022
